FAERS Safety Report 8298329-2 (Version None)
Quarter: 2012Q2

REPORT INFORMATION
  Report Type: 
  Country: None (occurrence: None)
  Receive Date: 20120419
  Receipt Date: 20120412
  Transmission Date: 20120825
  Serious: Yes (Other)
  Sender: FDA-Public Use
  Company Number: PHHY2012JP030043

PATIENT
  Sex: Male

DRUGS (5)
  1. APRESOLINE [Suspect]
     Dosage: MATERNAL DOSE 30 MG
     Route: 064
  2. RITODRINE HYDROCHLORIDE [Concomitant]
  3. APRESOLINE [Suspect]
     Dosage: MATERNAL DOSE OF 120 MG
     Route: 064
  4. METHYLDOPA [Suspect]
     Dosage: (MATERNAL DOSE OF 750 MG PER DAY)
     Route: 064
  5. FLOMOXEF SODIUM [Concomitant]

REACTIONS (3)
  - LOW BIRTH WEIGHT BABY [None]
  - PREMATURE BABY [None]
  - FOETAL EXPOSURE DURING PREGNANCY [None]
